FAERS Safety Report 11121146 (Version 1)
Quarter: 2015Q2

REPORT INFORMATION
  Report Type: Spontaneous
  Country: FR (occurrence: None)
  Receive Date: 20150515
  Receipt Date: 20150515
  Transmission Date: 20150821
  Serious: Yes (Hospitalization, Other)
  Sender: FDA-Public Use
  Company Number: FR-ZYDUS-008030

PATIENT
  Age: 50 Year
  Sex: Female

DRUGS (2)
  1. TRAMADOL (TRAMADOL) [Suspect]
     Active Substance: TRAMADOL
  2. ALPRAZOLAM (ALPRAZOLAM) [Suspect]
     Active Substance: ALPRAZOLAM

REACTIONS (14)
  - Mydriasis [None]
  - Exposure via ingestion [None]
  - Ventricular tachycardia [None]
  - Intentional overdose [None]
  - Atrioventricular block [None]
  - Somnolence [None]
  - Toxicity to various agents [None]
  - Respiratory arrest [None]
  - Electrocardiogram QRS complex prolonged [None]
  - Cyanosis [None]
  - Respiratory failure [None]
  - Drug interaction [None]
  - Epilepsy [None]
  - Cardiogenic shock [None]
